FAERS Safety Report 8558822-1 (Version None)
Quarter: 2012Q3

REPORT INFORMATION
  Report Type: 
  Country: None (occurrence: None)
  Receive Date: 20120801
  Receipt Date: 20120724
  Transmission Date: 20120928
  Serious: Yes (Other)
  Sender: FDA-Public Use
  Company Number: US-RB-039868-12

PATIENT
  Age: 26 Year
  Sex: Male

DRUGS (2)
  1. SUBOXONE [Suspect]
     Dosage: 2 STRIPS DAILY
     Route: 065
     Dates: start: 20120401, end: 20120401
  2. SUBOXONE [Suspect]
     Indication: DRUG DEPENDENCE
     Dosage: 1/2 STRIP TWICE DAILY
     Route: 065
     Dates: start: 20120401

REACTIONS (8)
  - CONVULSION [None]
  - APHAGIA [None]
  - FLUID INTAKE REDUCED [None]
  - VOMITING [None]
  - INSOMNIA [None]
  - WRONG TECHNIQUE IN DRUG USAGE PROCESS [None]
  - OVERDOSE [None]
  - SUICIDAL IDEATION [None]
